FAERS Safety Report 10043099 (Version 2)
Quarter: 2014Q2

REPORT INFORMATION
  Report Type: Spontaneous
  Country: US (occurrence: US)
  Receive Date: 20140328
  Receipt Date: 20140516
  Transmission Date: 20141212
  Serious: Yes (Death)
  Sender: FDA-Public Use
  Company Number: US-BIOGENIDEC-2014BI025512

PATIENT
  Age: 59 Year
  Sex: Female

DRUGS (1)
  1. TECFIDERA [Suspect]
     Indication: MULTIPLE SCLEROSIS
     Route: 048

REACTIONS (2)
  - Death [Fatal]
  - Gastrointestinal disorder [Unknown]
